FAERS Safety Report 6539270-2 (Version None)
Quarter: 2010Q1

REPORT INFORMATION
  Report Type: 
  Country: None (occurrence: None)
  Receive Date: 20100115
  Receipt Date: 20100104
  Transmission Date: 20100710
  Serious: No
  Sender: FDA-Public Use
  Company Number: US-JNJFOC-20100101339

PATIENT
  Sex: Male
  Weight: 40.82 kg

DRUGS (8)
  1. DURAGESIC-100 [Suspect]
     Indication: PAIN
     Dosage: 12.5 UG/HR X 2 PATCHES
     Route: 062
  2. DURAGESIC-100 [Suspect]
     Dosage: 12.5 UG/HR X 2 PATCHES, NDC#: 50458-0090-05
     Route: 062
  3. NEXIUM [Concomitant]
     Indication: GASTRIC DISORDER
     Route: 048
  4. GABAPENTIN [Concomitant]
     Route: 048
  5. RANITIDINE [Concomitant]
     Route: 048
  6. POTASSIUM [Concomitant]
     Indication: MINERAL SUPPLEMENTATION
     Route: 048
  7. CLONAZEPAM [Concomitant]
     Indication: ANXIETY
     Route: 048
  8. CARAFATE [Concomitant]
     Indication: GASTRIC DISORDER
     Route: 048

REACTIONS (2)
  - TREATMENT NONCOMPLIANCE [None]
  - WRONG TECHNIQUE IN DRUG USAGE PROCESS [None]
